FAERS Safety Report 8346971-2 (Version None)
Quarter: 2012Q2

REPORT INFORMATION
  Report Type: 
  Country: None (occurrence: None)
  Receive Date: 20120509
  Receipt Date: 20120430
  Transmission Date: 20120825
  Serious: Yes (Other)
  Sender: FDA-Public Use
  Company Number: US-ASTRAZENECA-2010SE36878

PATIENT
  Age: 69 Year
  Sex: Male

DRUGS (1)
  1. NEXIUM [Suspect]
     Route: 048

REACTIONS (3)
  - GASTRIC ULCER [None]
  - CEREBROVASCULAR ACCIDENT [None]
  - INTENTIONAL DRUG MISUSE [None]
